FAERS Safety Report 21018328 (Version 3)
Quarter: 2022Q3

REPORT INFORMATION
  Report Type: Spontaneous
  Country: CN (occurrence: CN)
  Receive Date: 20220628
  Receipt Date: 20220707
  Transmission Date: 20221027
  Serious: Yes (Hospitalization, Other)
  Sender: FDA-Public Use
  Company Number: CN-ORGANON-O2206CHN002151

PATIENT
  Age: 70 Year
  Sex: Female
  Weight: 50 kg

DRUGS (3)
  1. SINGULAIR [Suspect]
     Active Substance: MONTELUKAST SODIUM
     Indication: Chronic obstructive pulmonary disease
     Dosage: 10 MILLIGRAM, QD
     Route: 048
     Dates: start: 20220618, end: 20220618
  2. DOXOFYLLINE [Concomitant]
     Active Substance: DOXOFYLLINE
     Indication: Chronic obstructive pulmonary disease
     Dosage: 0.2G, BID
     Route: 048
     Dates: start: 20220617, end: 20220618
  3. AMINOPHYLLINE [Concomitant]
     Active Substance: AMINOPHYLLINE
     Indication: Chronic obstructive pulmonary disease
     Dosage: 250MG, QD
     Dates: start: 20220618, end: 20220618

REACTIONS (8)
  - Mental disorder [Recovered/Resolved]
  - Respiratory failure [Recovered/Resolved]
  - Electrolyte imbalance [Unknown]
  - Wheezing [Recovered/Resolved]
  - Insomnia [Recovered/Resolved]
  - Restlessness [Recovered/Resolved]
  - Aggression [Recovering/Resolving]
  - Product use in unapproved indication [Unknown]

NARRATIVE: CASE EVENT DATE: 20220601
